FAERS Safety Report 7383021-9 (Version None)
Quarter: 2011Q1

REPORT INFORMATION
  Report Type: 
  Country: None (occurrence: None)
  Receive Date: 20110330
  Receipt Date: 20110323
  Transmission Date: 20110831
  Serious: Yes (Other)
  Sender: FDA-Public Use
  Company Number: US-PFIZER INC-2011028266

PATIENT
  Sex: Female

DRUGS (4)
  1. TRAZODONE [Concomitant]
     Indication: SLEEP DISORDER
     Dosage: 300 UNK, EVERY NIGHT
  2. COGENTIN [Concomitant]
     Indication: TARDIVE DYSKINESIA
     Dosage: 0.5 UNK, TWICE DAILY
     Route: 030
     Dates: start: 20090901, end: 20100801
  3. WELLBUTRIN [Concomitant]
     Indication: DEPRESSION
     Dosage: 150 MG, 1X/DAY
     Dates: start: 20080101
  4. GEODON [Suspect]
     Indication: BLOOD PRESSURE
     Dosage: 80 MG, 1X/DAY
     Route: 048
     Dates: start: 20080718, end: 20100315

REACTIONS (1)
  - TARDIVE DYSKINESIA [None]
